FAERS Safety Report 24786547 (Version 1)
Quarter: 2024Q4

REPORT INFORMATION
  Report Type: Spontaneous
  Country: US (occurrence: US)
  Receive Date: 20241230
  Receipt Date: 20241230
  Transmission Date: 20250114
  Serious: No
  Sender: CELLTRION
  Company Number: US-CELLTRION INC.-2024US007628

PATIENT

DRUGS (4)
  1. TRUXIMA [Suspect]
     Active Substance: RITUXIMAB-ABBS
     Indication: Rheumatoid arthritis
     Dosage: THE PATIENT STARTED AN UNKNOWN DOSE OF TRUXIMA EVERY 6 MONTHS FOR RHEUMATIC DISEASE (RHEUMATOID ARTH
     Dates: start: 202401
  2. TRUXIMA [Suspect]
     Active Substance: RITUXIMAB-ABBS
     Indication: Osteoarthritis
  3. METHOTREXATE [Concomitant]
     Active Substance: METHOTREXATE
  4. HYDROXYCHLOROQUINE [Concomitant]
     Active Substance: HYDROXYCHLOROQUINE
     Dosage: TWICE A DAY

REACTIONS (8)
  - Feeling cold [Recovered/Resolved]
  - Influenza like illness [Unknown]
  - Seasonal allergy [Recovered/Resolved]
  - Inflammatory marker increased [Unknown]
  - Fatigue [Unknown]
  - Throat irritation [Recovered/Resolved]
  - Intentional product use issue [Unknown]
  - Intentional product use issue [Unknown]

NARRATIVE: CASE EVENT DATE: 20240101
